FAERS Safety Report 7420781-2 (Version None)
Quarter: 2011Q2

REPORT INFORMATION
  Report Type: 
  Country: None (occurrence: None)
  Receive Date: 20110418
  Receipt Date: 20110412
  Transmission Date: 20111010
  Serious: Yes (Other)
  Sender: FDA-Public Use
  Company Number: SE-PFIZER INC-2011081765

PATIENT
  Age: 61 Year
  Sex: Female

DRUGS (3)
  1. FONTEX [Suspect]
  2. TREO COMP [Suspect]
  3. XANOR DEPOT [Suspect]
     Indication: GENERALISED ANXIETY DISORDER
     Dosage: 2 MG, UNK

REACTIONS (3)
  - PAIN [None]
  - MALAISE [None]
  - BLOOD PRESSURE INCREASED [None]
